FAERS Safety Report 4940654-4 (Version None)
Quarter: 2006Q1

REPORT INFORMATION
  Report Type: 
  Country: None (occurrence: None)
  Receive Date: 20060203
  Receipt Date: 20050927
  Transmission Date: 20060701
  Serious: Yes (Other)
  Sender: FDA-Public Use
  Company Number: 2005134309

PATIENT
  Age: 68 Year
  Sex: Male
  Weight: 101.1521 kg

DRUGS (2)
  1. EMCYT [Suspect]
     Indication: PROSTATE CANCER
     Dosage: 140 MG (140 MG, DAILY), ORAL
     Route: 048
     Dates: start: 20050301
  2. DRUG, UNSPECIFIED [Concomitant]

REACTIONS (4)
  - DISEASE PROGRESSION [None]
  - PROSTATE CANCER [None]
  - STOMACH DISCOMFORT [None]
  - WEIGHT DECREASED [None]
